FAERS Safety Report 7914365-7 (Version None)
Quarter: 2011Q4

REPORT INFORMATION
  Report Type: 
  Country: None (occurrence: None)
  Receive Date: 20111115
  Receipt Date: 20111102
  Transmission Date: 20120403
  Serious: No
  Sender: FDA-Public Use
  Company Number: US-ELI_LILLY_AND_COMPANY-US201108000797

PATIENT
  Age: 69 Year
  Sex: Female
  Weight: 61.678 kg

DRUGS (1)
  1. FORTEO [Suspect]
     Indication: OSTEOPOROSIS
     Dosage: UNK, QD
     Route: 058
     Dates: start: 20110401

REACTIONS (7)
  - DYSPNOEA [None]
  - GAIT DISTURBANCE [None]
  - CHOLECYSTITIS CHRONIC [None]
  - GALLBLADDER POLYP [None]
  - PAIN IN EXTREMITY [None]
  - BONE PAIN [None]
  - MALAISE [None]
